FAERS Safety Report 24665906 (Version 1)
Quarter: 2024Q4

REPORT INFORMATION
  Report Type: Spontaneous
  Country: US (occurrence: US)
  Receive Date: 20241126
  Receipt Date: 20241126
  Transmission Date: 20250115
  Serious: Yes (Other)
  Sender: INCYTE
  Company Number: US-EVENT-000590

PATIENT

DRUGS (1)
  1. PEMAZYRE [Suspect]
     Active Substance: PEMIGATINIB
     Indication: Myoepithelial carcinoma of salivary gland
     Dosage: UNK
     Route: 065

REACTIONS (3)
  - Myoepithelial carcinoma of salivary gland [Unknown]
  - Disease progression [Unknown]
  - Off label use [Unknown]
